FAERS Safety Report 14543596 (Version 2)
Quarter: 2018Q1

REPORT INFORMATION
  Report Type: Report from Study
  Country: US (occurrence: BR)
  Receive Date: 20180216
  Receipt Date: 20180220
  Transmission Date: 20180509
  Serious: Yes (Hospitalization, Other)
  Sender: FDA-Public Use
  Company Number: US-SUNOVION-2018SUN000570

PATIENT
  Sex: Male
  Weight: 67 kg

DRUGS (1)
  1. INDACATEROL AND GLYCOPYRROLATE [Suspect]
     Active Substance: GLYCOPYRROLATE\INDACATEROL MALEATE
     Indication: LUNG DISORDER
     Dosage: 1 DF, QD
     Route: 055

REACTIONS (6)
  - Urinary retention [Unknown]
  - Weight decreased [Unknown]
  - Product use in unapproved indication [Unknown]
  - Renal failure [Not Recovered/Not Resolved]
  - Influenza [Unknown]
  - Fatigue [Unknown]
